FAERS Safety Report 12378934 (Version 2)
Quarter: 2016Q3

REPORT INFORMATION
  Report Type: Spontaneous
  Country: US (occurrence: US)
  Receive Date: 20160517
  Receipt Date: 20160901
  Transmission Date: 20161109
  Serious: No
  Sender: FDA-Public Use
  Company Number: US-RELYPSA-RLY2016000256

PATIENT
  Sex: Male

DRUGS (14)
  1. FOLIC ACID. [Concomitant]
     Active Substance: FOLIC ACID
  2. ENALAPRIL MALEATE. [Concomitant]
     Active Substance: ENALAPRIL MALEATE
  3. LASIX [Concomitant]
     Active Substance: FUROSEMIDE
  4. ATENOLOL. [Concomitant]
     Active Substance: ATENOLOL
  5. TIMOPTIC TIMOPTOL [Concomitant]
  6. VITAMIN B12 [Concomitant]
     Active Substance: CYANOCOBALAMIN
  7. VITAMIN D3 [Concomitant]
     Active Substance: CHOLECALCIFEROL
  8. NEXIUM [Concomitant]
     Active Substance: ESOMEPRAZOLE MAGNESIUM
  9. NOVOLOG [Concomitant]
     Active Substance: INSULIN ASPART
  10. FORTEO [Concomitant]
     Active Substance: TERIPARATIDE
  11. DILTIAZEM CD [Concomitant]
     Active Substance: DILTIAZEM
  12. VELTASSA [Suspect]
     Active Substance: PATIROMER
     Indication: HYPERKALAEMIA
     Dosage: 8.4 G, QD
     Route: 048
     Dates: start: 20160303
  13. ZOLOFT [Concomitant]
     Active Substance: SERTRALINE HYDROCHLORIDE
  14. XANAX [Concomitant]
     Active Substance: ALPRAZOLAM

REACTIONS (2)
  - Flatulence [Unknown]
  - Pain [Unknown]
